FAERS Safety Report 18464895 (Version 2)
Quarter: 2021Q1

REPORT INFORMATION
  Report Type: Spontaneous
  Country: DE (occurrence: DE)
  Receive Date: 20201105
  Receipt Date: 20210204
  Transmission Date: 20210419
  Serious: No
  Sender: FDA-Public Use
  Company Number: DE-ABBVIE-20K-062-3636267-00

PATIENT
  Age: 57 Year
  Sex: Male

DRUGS (1)
  1. TESTOGEL [Suspect]
     Active Substance: TESTOSTERONE
     Indication: ANDROGEN DEFICIENCY
     Dosage: DOSE REDUCED
     Route: 061
     Dates: end: 2019

REACTIONS (4)
  - Toxicity to various agents [Recovered/Resolved]
  - Aggression [Recovered/Resolved]
  - Psychiatric symptom [Recovered/Resolved]
  - Prescribed overdose [Recovered/Resolved]
